FAERS Safety Report 22651568 (Version 3)
Quarter: 2023Q4

REPORT INFORMATION
  Report Type: Spontaneous
  Country: US (occurrence: US)
  Receive Date: 20230628
  Receipt Date: 20231025
  Transmission Date: 20240110
  Serious: No
  Sender: FDA-Public Use
  Company Number: US-BRISTOL-MYERS SQUIBB COMPANY-2023-090821

PATIENT
  Age: 70 Year
  Sex: Female
  Weight: 58.06 kg

DRUGS (1)
  1. POMALYST [Suspect]
     Active Substance: POMALIDOMIDE
     Indication: Plasma cell myeloma
     Dosage: FREQUENCY-3 WKS ON, 1 WK OFF
     Route: 048

REACTIONS (3)
  - Pain [Unknown]
  - Neutrophil count decreased [Unknown]
  - Peripheral swelling [Recovering/Resolving]
